FAERS Safety Report 5527307-9 (Version None)
Quarter: 2007Q4

REPORT INFORMATION
  Report Type: 
  Country: None (occurrence: None)
  Receive Date: 20071128
  Receipt Date: 20071120
  Transmission Date: 20080405
  Serious: Yes (Hospitalization)
  Sender: FDA-Public Use
  Company Number: B0492879A

PATIENT
  Age: 55 Year
  Sex: Female
  Weight: 46.1 kg

DRUGS (5)
  1. VALTREX [Suspect]
     Indication: ENCEPHALITIS HERPES
     Dosage: 500MG THREE TIMES PER DAY
     Route: 048
     Dates: start: 20071005, end: 20071018
  2. TEGRETOL [Suspect]
     Indication: CONVULSION
     Route: 048
     Dates: start: 20071005, end: 20071018
  3. TAKEPRON [Concomitant]
     Dosage: 15MG PER DAY
     Route: 048
     Dates: start: 20070830, end: 20071018
  4. JUVELA N [Concomitant]
     Route: 048
  5. NAUZELIN [Concomitant]
     Indication: NAUSEA
     Route: 048

REACTIONS (5)
  - NAUSEA [None]
  - PETECHIAE [None]
  - PYREXIA [None]
  - THROMBOCYTOPENIA [None]
  - VOMITING [None]
